FAERS Safety Report 4511321-6 (Version None)
Quarter: 2004Q4

REPORT INFORMATION
  Report Type: 
  Country: None (occurrence: None)
  Receive Date: 20041124
  Receipt Date: 20041124
  Transmission Date: 20050328
  Serious: Yes (Other)
  Sender: FDA-Public Use
  Company Number: None

PATIENT
  Age: 39 Year
  Sex: Male
  Weight: 58.514 kg

DRUGS (12)
  1. GABAPENTIN [Suspect]
     Indication: NEUROPATHY PERIPHERAL
     Dosage: 900MG PO TID
     Route: 048
     Dates: start: 20020501
  2. EPIVIR [Concomitant]
  3. VIDEX EC [Concomitant]
  4. SUSTIVA [Concomitant]
  5. AZITHROMYCIN [Concomitant]
  6. AMITRIPTYLINE HCL [Concomitant]
  7. MORPHINE [Concomitant]
  8. REMERON [Concomitant]
  9. RIFABUTIN [Concomitant]
  10. ETHAMBUTOL [Concomitant]
  11. ATIVAN [Concomitant]
  12. DIFLUCAN [Concomitant]

REACTIONS (2)
  - NAUSEA [None]
  - PHARMACEUTICAL PRODUCT COMPLAINT [None]
